FAERS Safety Report 4365650-X (Version None)
Quarter: 2004Q2

REPORT INFORMATION
  Report Type: 
  Country: None (occurrence: None)
  Receive Date: 20040522
  Receipt Date: 20040506
  Transmission Date: 20050107
  Serious: Yes (Other)
  Sender: FDA-Public Use
  Company Number: A0509898A

PATIENT
  Age: 37 Year
  Sex: Male

DRUGS (1)
  1. COMMIT [Suspect]
     Indication: EX-SMOKER
     Dosage: 4 MG / TRANSBUCCAL
     Route: 002
     Dates: start: 20030901

REACTIONS (3)
  - HAEMATOCHEZIA [None]
  - STOOLS WATERY [None]
  - THROMBOSIS [None]
